FAERS Safety Report 4960462-8 (Version None)
Quarter: 2006Q2

REPORT INFORMATION
  Report Type: 
  Country: None (occurrence: None)
  Receive Date: 20060403
  Receipt Date: 20060310
  Transmission Date: 20061013
  Serious: Yes (Death, Hospitalization, Disabling, Other)
  Sender: FDA-Public Use
  Company Number: JP-GLAXOSMITHKLINE-B0415611A

PATIENT
  Age: 58 Year
  Sex: Male

DRUGS (20)
  1. EPIVIR [Suspect]
     Indication: HIV INFECTION
     Dates: start: 20040219
  2. ZIAGEN [Suspect]
     Indication: HIV INFECTION
     Dosage: 300MG TWICE PER DAY
     Route: 048
     Dates: start: 20020917, end: 20030717
  3. RETROVIR [Suspect]
     Indication: HIV INFECTION
     Dosage: 400MG PER DAY
     Route: 048
     Dates: start: 20011025, end: 20011126
  4. VIDEX EC [Suspect]
     Indication: HIV INFECTION
     Dosage: 250MG PER DAY
     Route: 048
     Dates: start: 20011025, end: 20020709
  5. ZERIT [Suspect]
     Indication: HIV INFECTION
     Route: 048
     Dates: start: 20011127, end: 20020709
  6. STOCRIN [Suspect]
     Indication: HIV INFECTION
     Dosage: 600MG PER DAY
     Route: 048
     Dates: start: 20011025, end: 20040516
  7. KALETRA [Suspect]
     Indication: HIV INFECTION
     Route: 048
     Dates: start: 20020917, end: 20040516
  8. GANCICLOVIR [Suspect]
     Indication: CYTOMEGALOVIRUS INFECTION
     Dosage: 1000MG THREE TIMES PER DAY
     Route: 048
     Dates: start: 20020306, end: 20020717
  9. GANCICLOVIR [Suspect]
     Route: 042
     Dates: start: 20010908, end: 20011221
  10. BAKTAR [Suspect]
     Dosage: 1UNIT PER DAY
     Route: 048
     Dates: start: 20010907, end: 20040526
  11. FOSCAVIR [Concomitant]
     Indication: CYTOMEGALOVIRUS INFECTION
     Route: 042
     Dates: start: 20010926, end: 20020305
  12. DIFLUCAN [Concomitant]
     Dosage: 100MG PER DAY
     Route: 048
     Dates: start: 20010907, end: 20010920
  13. CORTRIL [Concomitant]
     Indication: ADRENAL INSUFFICIENCY
     Route: 048
     Dates: start: 20010912, end: 20040522
  14. PREDONINE [Concomitant]
     Indication: ADRENAL INSUFFICIENCY
     Route: 048
     Dates: start: 20010928, end: 20040522
  15. SOLU-CORTEF [Concomitant]
     Indication: ADRENAL INSUFFICIENCY
     Dosage: 1000MG PER DAY
     Route: 048
     Dates: start: 20040521, end: 20040521
  16. PREDONINE [Concomitant]
     Route: 048
     Dates: start: 20040523, end: 20040526
  17. BENAMBAX [Concomitant]
     Route: 048
     Dates: start: 20011019, end: 20020225
  18. NEULEPTIL [Concomitant]
     Indication: DELIRIUM
     Dosage: 10MG PER DAY
     Route: 048
     Dates: start: 20011217, end: 20021119
  19. AKINETON [Concomitant]
     Dosage: 1MG TWICE PER DAY
     Route: 048
     Dates: start: 20011217, end: 20020709
  20. SYMMETREL [Concomitant]
     Dosage: 50MG PER DAY
     Route: 048
     Dates: start: 20020710, end: 20021119

REACTIONS (8)
  - ANAEMIA [None]
  - CYTOMEGALOVIRUS CHORIORETINITIS [None]
  - DECREASED APPETITE [None]
  - LACTIC ACIDOSIS [None]
  - MALAISE [None]
  - PNEUMONIA [None]
  - VOMITING [None]
  - WHITE BLOOD CELL COUNT DECREASED [None]
